FAERS Safety Report 9704200 (Version 1)
Quarter: 2013Q4

REPORT INFORMATION
  Report Type: Spontaneous
  Country: US (occurrence: US)
  Receive Date: 20131122
  Receipt Date: 20131122
  Transmission Date: 20140711
  Serious: Yes (Hospitalization, Other)
  Sender: FDA-Public Use
  Company Number: US-JNJFOC-20131106115

PATIENT
  Sex: Male
  Weight: 105.69 kg

DRUGS (5)
  1. XARELTO [Suspect]
     Indication: CEREBROVASCULAR ACCIDENT
     Route: 048
     Dates: start: 2012
  2. XARELTO [Suspect]
     Indication: CEREBROVASCULAR ACCIDENT
     Route: 048
     Dates: start: 2011, end: 2012
  3. AVODART [Concomitant]
     Indication: PROSTATIC DISORDER
     Route: 048
     Dates: start: 2006
  4. BICALUTAMIDE [Concomitant]
     Indication: PROSTATIC DISORDER
     Route: 048
     Dates: start: 2006
  5. TAMOXIFEN [Concomitant]
     Indication: PROSTATIC DISORDER
     Route: 048
     Dates: start: 2006

REACTIONS (6)
  - Arteriospasm coronary [Unknown]
  - Anaemia [Recovering/Resolving]
  - Abnormal loss of weight [Not Recovered/Not Resolved]
  - Skin ulcer [Not Recovered/Not Resolved]
  - Contusion [Not Recovered/Not Resolved]
  - Incorrect dose administered [Not Recovered/Not Resolved]
